FAERS Safety Report 13085595 (Version 2)
Quarter: 2017Q1

REPORT INFORMATION
  Report Type: Report from Study
  Country: US (occurrence: US)
  Receive Date: 20170104
  Receipt Date: 20170110
  Transmission Date: 20170428
  Serious: No
  Sender: FDA-Public Use
  Company Number: US-ASTRAZENECA-2016SE57405

PATIENT
  Age: 24458 Day
  Sex: Female

DRUGS (9)
  1. OXYCODONE [Concomitant]
     Active Substance: OXYCODONE
  2. FENTANYL. [Concomitant]
     Active Substance: FENTANYL
  3. MIRTAZAPINE. [Concomitant]
     Active Substance: MIRTAZAPINE
  4. LISINOPRIL. [Suspect]
     Active Substance: LISINOPRIL
     Route: 048
  5. MEGESTROL [Concomitant]
     Active Substance: MEGESTROL
  6. OPDIVO [Concomitant]
     Active Substance: NIVOLUMAB
  7. TAGRISSO [Suspect]
     Active Substance: OSIMERTINIB
     Indication: LUNG CARCINOMA CELL TYPE UNSPECIFIED STAGE 0
     Route: 048
     Dates: start: 20160311
  8. OMEPRAZOLE. [Suspect]
     Active Substance: OMEPRAZOLE
     Route: 048
  9. TAGRISSO [Suspect]
     Active Substance: OSIMERTINIB
     Indication: LUNG ADENOCARCINOMA
     Route: 048
     Dates: start: 20160311

REACTIONS (8)
  - Pigmentation disorder [Unknown]
  - Fatigue [Unknown]
  - Vaginal haemorrhage [Unknown]
  - Oropharyngeal pain [Unknown]
  - Infection [Unknown]
  - Vision blurred [Recovered/Resolved]
  - Drug dose omission [Unknown]
  - Malaise [Unknown]

NARRATIVE: CASE EVENT DATE: 20160523
